FAERS Safety Report 13233969 (Version 1)
Quarter: 2017Q1

REPORT INFORMATION
  Report Type: Spontaneous
  Country: JP (occurrence: JP)
  Receive Date: 20170215
  Receipt Date: 20170215
  Transmission Date: 20170428
  Serious: Yes (Hospitalization, Other)
  Sender: FDA-Public Use
  Company Number: JP-ROCHE-1859836

PATIENT
  Age: 77 Year
  Sex: Male

DRUGS (2)
  1. XELODA [Suspect]
     Active Substance: CAPECITABINE
     Indication: COLON CANCER
     Dosage: DOSAGE IS UNCERTAIN.
     Route: 048
     Dates: start: 20160901, end: 20161003
  2. PYDOXAL [Concomitant]
     Active Substance: PYRIDOXAL
     Dosage: DOSAGE IS UNCERTAIN.
     Route: 065

REACTIONS (7)
  - Deafness bilateral [Unknown]
  - Cerebral haemorrhage [Unknown]
  - Off label use [Unknown]
  - Brain contusion [Unknown]
  - Syncope [Recovered/Resolved with Sequelae]
  - Fall [Unknown]
  - Contusion [Unknown]

NARRATIVE: CASE EVENT DATE: 20160905
